FAERS Safety Report 15815069 (Version 1)
Quarter: 2019Q1

REPORT INFORMATION
  Report Type: Report from Study
  Country: ES (occurrence: ES)
  Receive Date: 20190112
  Receipt Date: 20190112
  Transmission Date: 20190417
  Serious: Yes (Hospitalization)
  Sender: FDA-Public Use
  Company Number: ES-TEVA-2019-ES-997875

PATIENT
  Age: 50 Year
  Sex: Female

DRUGS (1)
  1. TAMOXIFENO [Suspect]
     Active Substance: TAMOXIFEN
     Indication: BREAST CANCER
     Dosage: 20 MILLIGRAM DAILY;
     Route: 048
     Dates: start: 20130902

REACTIONS (2)
  - Metrorrhagia [Recovered/Resolved]
  - Endometrial disorder [Recovered/Resolved]

NARRATIVE: CASE EVENT DATE: 20180205
